FAERS Safety Report 9501170 (Version 1)
Quarter: 2013Q3

REPORT INFORMATION
  Report Type: Spontaneous
  Country: US (occurrence: US)
  Receive Date: 20130905
  Receipt Date: 20130905
  Transmission Date: 20140515
  Serious: No
  Sender: FDA-Public Use
  Company Number: US-ASTRAZENECA-2013SE49703

PATIENT
  Sex: Female

DRUGS (4)
  1. SYMBICORT [Suspect]
     Dosage: 320 MCG BID
     Route: 055
  2. SYMBICORT [Suspect]
     Dosage: 160/4.5 MCG BID
     Route: 055
  3. SYMBICORT [Suspect]
     Dosage: TWO PUFFS ONCE DAILY
     Route: 055
  4. SYMBICORT [Suspect]
     Dosage: TWO PUFFS ONCE DAILY
     Route: 055
     Dates: start: 20130603, end: 20130626

REACTIONS (3)
  - Oral pain [Unknown]
  - Intentional drug misuse [Unknown]
  - Drug dose omission [Unknown]
